FAERS Safety Report 13613276 (Version 2)
Quarter: 2017Q4

REPORT INFORMATION
  Report Type: Spontaneous
  Country: BR (occurrence: BR)
  Receive Date: 20170605
  Receipt Date: 20171213
  Transmission Date: 20180320
  Serious: Yes (Hospitalization)
  Sender: FDA-Public Use
  Company Number: BR-ELI_LILLY_AND_COMPANY-BR201705012642

PATIENT
  Sex: Female

DRUGS (2)
  1. HUMULIN R [Suspect]
     Active Substance: INSULIN HUMAN
     Indication: PRODUCT USED FOR UNKNOWN INDICATION
     Dosage: UNK, UNKNOWN
     Route: 065
  2. HUMULIN N [Suspect]
     Active Substance: INSULIN HUMAN
     Indication: PRODUCT USED FOR UNKNOWN INDICATION
     Dosage: 16 IU, UNKNOWN
     Route: 065

REACTIONS (10)
  - Blood glucose fluctuation [Unknown]
  - Drug dose omission [Unknown]
  - Intentional product use issue [Unknown]
  - Blood glucose decreased [Recovered/Resolved]
  - Visual impairment [Recovered/Resolved]
  - Syncope [Recovered/Resolved]
  - Hyperglycaemia [Recovered/Resolved]
  - Fear [Recovered/Resolved]
  - Hunger [Recovered/Resolved]
  - Hyperglycaemia [Recovered/Resolved]

NARRATIVE: CASE EVENT DATE: 201702
